FAERS Safety Report 25967999 (Version 1)
Quarter: 2025Q4

REPORT INFORMATION
  Report Type: Spontaneous
  Country: US (occurrence: US)
  Receive Date: 20251028
  Receipt Date: 20251028
  Transmission Date: 20260118
  Serious: No
  Sender: ROCHE
  Company Number: US-ROCHE-10000416410

PATIENT

DRUGS (2)
  1. TNKASE [Suspect]
     Active Substance: TENECTEPLASE
     Indication: Product used for unknown indication
     Route: 050
  2. STERILE WATER [Suspect]
     Active Substance: WATER
     Indication: Product used for unknown indication
     Dosage: VOLUME } 6.2 OR 6.4 ML PER REPORT FOR THE LABELED 5.2 ML VIAL)
     Route: 065

REACTIONS (3)
  - Product preparation error [Unknown]
  - Inappropriate schedule of product administration [Unknown]
  - No adverse event [Unknown]
